FAERS Safety Report 7593656-6 (Version None)
Quarter: 2011Q3

REPORT INFORMATION
  Report Type: 
  Country: None (occurrence: None)
  Receive Date: 20110706
  Receipt Date: 20110705
  Transmission Date: 20111222
  Serious: Yes (Hospitalization)
  Sender: FDA-Public Use
  Company Number: PHHY2011CH42139

PATIENT
  Age: 10 Year
  Sex: Female

DRUGS (2)
  1. ZADITEN [Suspect]
     Dosage: 2 DRP, QD
     Dates: start: 20110504, end: 20110505
  2. ZADITEN [Suspect]
     Dosage: 1 DRP, QD
     Dates: start: 20110506, end: 20110509

REACTIONS (2)
  - ELECTROCARDIOGRAM QT PROLONGED [None]
  - MALAISE [None]
